FAERS Safety Report 7772204-1 (Version None)
Quarter: 2011Q3

REPORT INFORMATION
  Report Type: 
  Country: None (occurrence: None)
  Receive Date: 20110922
  Receipt Date: 20110418
  Transmission Date: 20111222
  Serious: No
  Sender: FDA-Public Use
  Company Number: US-ASTRAZENECA-2007UW05362

PATIENT
  Age: 25 Year
  Sex: Female
  Weight: 157.4 kg

DRUGS (19)
  1. SEROQUEL [Suspect]
     Route: 048
     Dates: start: 20000627
  2. EFFEXOR XR [Concomitant]
     Dates: start: 19980101, end: 20020101
  3. PAXIL [Concomitant]
  4. SEROQUEL [Suspect]
     Indication: DEPRESSION
     Dosage: 100 MG-600 MG
     Route: 048
     Dates: start: 20000601, end: 20051201
  5. DEPAKOTE [Concomitant]
     Dates: start: 20001110
  6. TRILEPTAL [Concomitant]
     Dosage: 300-1200 MG QD
     Dates: start: 20060601
  7. VISTARIL [Concomitant]
  8. SEROQUEL [Suspect]
     Indication: SCHIZOPHRENIA
     Dosage: 100 MG-600 MG
     Route: 048
     Dates: start: 20000601, end: 20051201
  9. CYMBALTA [Concomitant]
  10. SEROQUEL [Suspect]
     Route: 048
     Dates: start: 20000627
  11. NAVANE (THIOTHIXINE) [Concomitant]
     Dates: start: 19940101, end: 19950101
  12. SEROQUEL [Suspect]
     Indication: BIPOLAR DISORDER
     Dosage: 100 MG-600 MG
     Route: 048
     Dates: start: 20000601, end: 20051201
  13. RISPERDAL [Concomitant]
     Dates: start: 19980101, end: 20000101
  14. REMERON [Concomitant]
  15. SEROQUEL [Suspect]
     Route: 048
     Dates: start: 20000627
  16. WELLBUTRIN [Concomitant]
     Dates: start: 20010101, end: 20030101
  17. PROZAC [Concomitant]
  18. GEODON [Concomitant]
  19. HALDOL [Concomitant]

REACTIONS (3)
  - GESTATIONAL DIABETES [None]
  - TYPE 2 DIABETES MELLITUS [None]
  - DIABETES MELLITUS INADEQUATE CONTROL [None]
